FAERS Safety Report 14319008 (Version 15)
Quarter: 2018Q2

REPORT INFORMATION
  Report Type: Spontaneous
  Country: LT (occurrence: LT)
  Receive Date: 20171222
  Receipt Date: 20180413
  Transmission Date: 20180711
  Serious: Yes (Death, Life-Threatening, Hospitalization, Other)
  Sender: FDA-Public Use
  Company Number: LT-JNJFOC-20171227675

PATIENT
  Age: 53 Year
  Sex: Female

DRUGS (24)
  1. PEMETREXED. [Interacting]
     Active Substance: PEMETREXED
     Indication: PLEURAL MESOTHELIOMA
     Route: 065
  2. APREPITANT. [Interacting]
     Active Substance: APREPITANT
     Indication: PROPHYLAXIS
     Route: 048
     Dates: start: 20160101, end: 20161121
  3. ONDANSETRON [Interacting]
     Active Substance: ONDANSETRON
     Indication: PROPHYLAXIS OF NAUSEA AND VOMITING
     Route: 048
     Dates: start: 20160101, end: 20161121
  4. FOLIC ACID. [Interacting]
     Active Substance: FOLIC ACID
     Indication: PREMEDICATION
     Route: 042
     Dates: start: 20160101
  5. DEXAMETHASONE. [Interacting]
     Active Substance: DEXAMETHASONE
     Indication: DRUG INTOLERANCE
     Route: 048
     Dates: start: 20160101, end: 20161121
  6. TRAMADOL HYDROCHLORIDE. [Suspect]
     Active Substance: TRAMADOL HYDROCHLORIDE
     Indication: PAIN MANAGEMENT
     Route: 048
     Dates: start: 20160101
  7. FENTANYL. [Interacting]
     Active Substance: FENTANYL
     Indication: PAIN PROPHYLAXIS
     Route: 062
     Dates: start: 20160101
  8. PEMETREXED. [Interacting]
     Active Substance: PEMETREXED
     Indication: PLEURAL MESOTHELIOMA
     Route: 065
     Dates: start: 2015, end: 20160101
  9. ALPRAZOLAM. [Interacting]
     Active Substance: ALPRAZOLAM
     Indication: ANXIETY DISORDER
     Route: 048
     Dates: start: 20160101
  10. ONDANSETRON [Interacting]
     Active Substance: ONDANSETRON
     Indication: PROPHYLAXIS
     Route: 048
     Dates: start: 20160101, end: 20161121
  11. TIANEPTINE [Interacting]
     Active Substance: TIANEPTINE
     Indication: PAIN MANAGEMENT
     Route: 048
     Dates: start: 20160101
  12. MANNITOL. [Interacting]
     Active Substance: MANNITOL
     Indication: TOXICITY TO VARIOUS AGENTS
     Route: 042
     Dates: start: 20160101, end: 20161121
  13. CISPLATIN. [Interacting]
     Active Substance: CISPLATIN
     Indication: PRODUCT USED FOR UNKNOWN INDICATION
     Route: 065
     Dates: start: 2015, end: 2016
  14. CYANOCOBALAMIN. [Interacting]
     Active Substance: CYANOCOBALAMIN
     Indication: PREMEDICATION
     Route: 042
     Dates: start: 20160101
  15. CISPLATIN TEVA [Interacting]
     Active Substance: CISPLATIN
     Indication: PLEURAL MESOTHELIOMA
     Route: 042
     Dates: start: 2010, end: 20160101
  16. DEXAMETHASONE. [Interacting]
     Active Substance: DEXAMETHASONE
     Indication: PREMEDICATION
     Route: 048
     Dates: start: 20160101, end: 20161121
  17. APREPITANT. [Interacting]
     Active Substance: APREPITANT
     Indication: PROPHYLAXIS OF NAUSEA AND VOMITING
     Route: 048
     Dates: start: 20160101, end: 20161121
  18. METOPROLOL SUCCINATE. [Interacting]
     Active Substance: METOPROLOL SUCCINATE
     Indication: HYPERTENSION
     Route: 048
     Dates: start: 20160101
  19. TIANEPTINE [Interacting]
     Active Substance: TIANEPTINE
     Indication: DEPRESSION
     Route: 048
     Dates: start: 20160101
  20. FENTANYL. [Interacting]
     Active Substance: FENTANYL
     Indication: PAIN MANAGEMENT
     Route: 062
     Dates: start: 20160101
  21. DEXAMETHASONE. [Interacting]
     Active Substance: DEXAMETHASONE
     Indication: PREMEDICATION
     Route: 048
     Dates: start: 2016
  22. DEXAMETHASONE. [Interacting]
     Active Substance: DEXAMETHASONE
     Indication: DRUG INTOLERANCE
     Route: 048
     Dates: start: 2016
  23. CISPLATIN TEVA [Interacting]
     Active Substance: CISPLATIN
     Indication: PLEURAL MESOTHELIOMA
     Dosage: 0.5MG/ML; 100 ML
     Route: 042
     Dates: start: 2016, end: 2016
  24. ANGIOCELL [Interacting]
     Active Substance: SHARK CARTILAGE\SHARK, UNSPECIFIED
     Indication: PRODUCT USED FOR UNKNOWN INDICATION
     Route: 048
     Dates: start: 20160101

REACTIONS (10)
  - Drug interaction [Unknown]
  - Sudden cardiac death [Fatal]
  - Hypomagnesaemia [Unknown]
  - Hypersensitivity [Recovered/Resolved]
  - Haemodynamic instability [Recovered/Resolved]
  - Anaphylactic reaction [Recovered/Resolved]
  - Circulatory collapse [Recovered/Resolved]
  - Toxicity to various agents [Unknown]
  - Cardio-respiratory arrest [Fatal]
  - Cardiotoxicity [Recovered/Resolved]

NARRATIVE: CASE EVENT DATE: 20160101
